FAERS Safety Report 7913818-5 (Version None)
Quarter: 2011Q4

REPORT INFORMATION
  Report Type: 
  Country: None (occurrence: None)
  Receive Date: 20111115
  Receipt Date: 20111107
  Transmission Date: 20120403
  Serious: Yes (Hospitalization)
  Sender: FDA-Public Use
  Company Number: AU-B.I. PHARMACEUTICALS,INC./RIDGEFIELD-2011-AU-02077AU

PATIENT
  Sex: Female

DRUGS (7)
  1. DIGOXIN [Concomitant]
     Indication: HEART RATE IRREGULAR
  2. FISH OIL [Concomitant]
  3. IRBESARTAN + HYDROCHLOROTHIAZIDE [Concomitant]
  4. CARTIA XT [Concomitant]
  5. MOBIC [Suspect]
  6. AMLODIPINE [Concomitant]
     Indication: HEART RATE IRREGULAR
  7. MOBIC [Suspect]
     Indication: OSTEOARTHRITIS

REACTIONS (2)
  - SCIATICA [None]
  - LARGE INTESTINAL HAEMORRHAGE [None]
